FAERS Safety Report 22184909 (Version 1)
Quarter: 2023Q2

REPORT INFORMATION
  Report Type: Spontaneous
  Country: US (occurrence: US)
  Receive Date: 20230407
  Receipt Date: 20230407
  Transmission Date: 20230722
  Serious: Yes (Hospitalization)
  Sender: FDA-Public Use
  Company Number: US-drreddys-SPO/USA/23/0163174

PATIENT
  Age: 58 Year
  Sex: Male

DRUGS (32)
  1. QUETIAPINE FUMARATE [Suspect]
     Active Substance: QUETIAPINE FUMARATE
     Indication: Delirium
     Dosage: ON DAY-03
  2. QUETIAPINE FUMARATE [Suspect]
     Active Substance: QUETIAPINE FUMARATE
     Dosage: ON DAY-01
  3. QUETIAPINE FUMARATE [Suspect]
     Active Substance: QUETIAPINE FUMARATE
     Dosage: ON DAY-02
  4. DEXMEDETOMIDINE [Suspect]
     Active Substance: DEXMEDETOMIDINE
     Indication: Delirium
     Dosage: TITRATED UP TO (ON DAY-01)
     Route: 042
  5. DEXMEDETOMIDINE [Suspect]
     Active Substance: DEXMEDETOMIDINE
     Dosage: ON DAY-02
     Route: 042
  6. DEXMEDETOMIDINE [Suspect]
     Active Substance: DEXMEDETOMIDINE
     Dosage: ON DAY-01
     Route: 042
  7. DEXMEDETOMIDINE [Suspect]
     Active Substance: DEXMEDETOMIDINE
     Dosage: TITRATED UP TO 0.4 MCG/KG/HR OFF BY 0730  (ON DAY-03)
     Route: 042
  8. DEXMEDETOMIDINE [Suspect]
     Active Substance: DEXMEDETOMIDINE
     Dosage: ON DAY-03
     Route: 042
  9. DEXMEDETOMIDINE [Suspect]
     Active Substance: DEXMEDETOMIDINE
     Dosage: TITRATED UP TO (ON DAY-02)
     Route: 042
  10. VALPROIC ACID [Concomitant]
     Active Substance: VALPROIC ACID
     Indication: Delirium
     Dosage: ON DAY-03
     Route: 042
  11. VALPROIC ACID [Concomitant]
     Active Substance: VALPROIC ACID
     Dosage: ON DAY-02
     Route: 042
  12. VALPROIC ACID [Concomitant]
     Active Substance: VALPROIC ACID
     Dosage: 20 MG/KG (TOTAL:1852MG) (ON DAY-02)
     Route: 042
  13. HALOPERIDOL [Concomitant]
     Active Substance: HALOPERIDOL
     Indication: Delirium
     Dosage: ON DAY-01
  14. HALOPERIDOL [Concomitant]
     Active Substance: HALOPERIDOL
     Dosage: ON DAY-02
  15. HALOPERIDOL [Concomitant]
     Active Substance: HALOPERIDOL
     Dosage: ON DAY-01
  16. GABAPENTIN [Concomitant]
     Active Substance: GABAPENTIN
     Indication: Neuralgia
     Dosage: ON DAY-02
  17. GABAPENTIN [Concomitant]
     Active Substance: GABAPENTIN
     Dosage: ON DAY-01
  18. GABAPENTIN [Concomitant]
     Active Substance: GABAPENTIN
     Dosage: ON DAY-03
  19. GABAPENTIN [Concomitant]
     Active Substance: GABAPENTIN
     Dosage: ON DAY-02
  20. KETAMINE [Concomitant]
     Active Substance: KETAMINE
     Indication: Delirium
     Dosage: ON DAY-02
  21. KETAMINE [Concomitant]
     Active Substance: KETAMINE
     Dosage: ON DAY-02
     Route: 042
  22. KETAMINE [Concomitant]
     Active Substance: KETAMINE
     Dosage: TITRATED UP TO (ON DAY-02)
     Route: 042
  23. KETAMINE [Concomitant]
     Active Substance: KETAMINE
     Dosage: ON DAY-03-4
     Route: 042
  24. KETAMINE [Concomitant]
     Active Substance: KETAMINE
     Dosage: ON DAY-02
     Route: 042
  25. KETAMINE [Concomitant]
     Active Substance: KETAMINE
     Dosage: ON DAY-01
     Route: 042
  26. KETAMINE [Concomitant]
     Active Substance: KETAMINE
     Dosage: ON DAY-01
     Route: 042
  27. MIDAZOLAM [Concomitant]
     Active Substance: MIDAZOLAM
     Indication: Delirium
     Dosage: 7 TIMES A DAY (ON DAY-01)
  28. MIDAZOLAM [Concomitant]
     Active Substance: MIDAZOLAM
     Dosage: ON DAY-02
  29. MIDAZOLAM [Concomitant]
     Active Substance: MIDAZOLAM
     Dosage: ON DAY-01
  30. LORAZEPAM [Concomitant]
     Active Substance: LORAZEPAM
     Indication: Delirium
     Dosage: ON DAY-01 (SCHEDULED DOSING)
  31. LORAZEPAM [Concomitant]
     Active Substance: LORAZEPAM
     Dosage: ON DAY-03 (SCHEDULED DOSING)
  32. LORAZEPAM [Concomitant]
     Active Substance: LORAZEPAM
     Dosage: ON DAY-02 (SCHEDULED DOSING)

REACTIONS (2)
  - Sedation complication [Unknown]
  - Product use in unapproved indication [Unknown]
